FAERS Safety Report 18729697 (Version 1)
Quarter: 2021Q1

REPORT INFORMATION
  Report Type: Other
  Country: JP (occurrence: JP)
  Receive Date: 20210112
  Receipt Date: 20210112
  Transmission Date: 20210419
  Serious: Yes (Hospitalization, Other)
  Sender: FDA-Public Use
  Company Number: JP-DEXPHARM-20201207

PATIENT
  Age: 80 Year
  Sex: Female

DRUGS (6)
  1. BEVACIZUMAB. [Suspect]
     Active Substance: BEVACIZUMAB
     Dosage: 10 MG/KG ON DAY 1 AND 15
     Dates: start: 201710
  2. PACLITAXEL. [Interacting]
     Active Substance: PACLITAXEL
     Dosage: 90 MG/M^2 ON DAY 1, 8 AND ON DAY 15 OF EVERY 4?WEEK CYCLE
     Dates: start: 201710
  3. LOSARTAN. [Concomitant]
     Active Substance: LOSARTAN
  4. AMLODIPINE [Concomitant]
     Active Substance: AMLODIPINE BESYLATE
  5. ATORVASTATIN [Concomitant]
     Active Substance: ATORVASTATIN
  6. ESOMEPRAZOLE. [Interacting]
     Active Substance: ESOMEPRAZOLE MAGNESIUM

REACTIONS (2)
  - Drug interaction [Unknown]
  - Gastritis bacterial [Recovered/Resolved]
